FAERS Safety Report 22271059 (Version 1)
Quarter: 2023Q2

REPORT INFORMATION
  Report Type: Spontaneous
  Country: CN (occurrence: None)
  Receive Date: 20230501
  Receipt Date: 20230501
  Transmission Date: 20230721
  Serious: Yes (Life-Threatening, Other)
  Sender: FDA-Public Use
  Company Number: 2023A100343

PATIENT
  Age: 64 Year
  Sex: Female

DRUGS (4)
  1. IRESSA [Suspect]
     Active Substance: GEFITINIB
     Indication: Lung adenocarcinoma
     Route: 048
  2. OSIMERTINIB [Suspect]
     Active Substance: OSIMERTINIB
     Indication: Lung adenocarcinoma
     Route: 048
     Dates: start: 20210418
  3. CISPLATIN [Concomitant]
     Active Substance: CISPLATIN
  4. AVASTIN [Concomitant]
     Active Substance: BEVACIZUMAB
     Route: 042

REACTIONS (5)
  - Thrombocytopenia [Recovered/Resolved]
  - Haemorrhage [Unknown]
  - Drug resistance [Unknown]
  - Malignant neoplasm progression [Unknown]
  - Gene mutation [Unknown]
